FAERS Safety Report 18501994 (Version 1)
Quarter: 2020Q4

REPORT INFORMATION
  Report Type: Report from Study
  Country: GT (occurrence: GT)
  Receive Date: 20201113
  Receipt Date: 20201113
  Transmission Date: 20210114
  Serious: Yes (Death)
  Sender: FDA-Public Use
  Company Number: GT-BAYER-2020-188654

PATIENT
  Age: 55 Year
  Sex: Male

DRUGS (2)
  1. NEXAVAR [Suspect]
     Active Substance: SORAFENIB
     Indication: METASTASES TO LUNG
  2. NEXAVAR [Suspect]
     Active Substance: SORAFENIB
     Indication: THYROID CANCER
     Dosage: 800 MG PER DAY, 400 MG IN THE MORNING AND 400 MG AT NIGHT
     Dates: start: 20200706, end: 20201011

REACTIONS (3)
  - Respiratory failure [Fatal]
  - Dry skin [None]
  - Blister [Fatal]

NARRATIVE: CASE EVENT DATE: 20200811
